FAERS Safety Report 23961600 (Version 1)
Quarter: 2024Q2

REPORT INFORMATION
  Report Type: Report from Study
  Country: CA (occurrence: CA)
  Receive Date: 20240611
  Receipt Date: 20240611
  Transmission Date: 20240716
  Serious: Yes (Other)
  Sender: FDA-Public Use
  Company Number: CA-PFIZER INC-202400189349

PATIENT
  Age: 64 Year
  Sex: Male

DRUGS (2)
  1. PAXLOVID [Suspect]
     Active Substance: NIRMATRELVIR\RITONAVIR
     Indication: COVID-19 treatment
     Dosage: UNK
     Route: 065
  2. OCRELIZUMAB [Suspect]
     Active Substance: OCRELIZUMAB
     Indication: Primary progressive multiple sclerosis
     Dosage: 300 MG, 1 EVERY 14 DAYS
     Route: 042

REACTIONS (4)
  - COVID-19 [Not Recovered/Not Resolved]
  - Cataract [Not Recovered/Not Resolved]
  - Dehydration [Not Recovered/Not Resolved]
  - Presyncope [Not Recovered/Not Resolved]
